FAERS Safety Report 21062247 (Version 4)
Quarter: 2022Q3

REPORT INFORMATION
  Report Type: Spontaneous
  Country: US (occurrence: US)
  Receive Date: 20220711
  Receipt Date: 20220825
  Transmission Date: 20221027
  Serious: No
  Sender: FDA-Public Use
  Company Number: US-NOVARTISTESTPH-NVSC2022US156296

PATIENT
  Sex: Female

DRUGS (2)
  1. ILEVRO [Suspect]
     Active Substance: NEPAFENAC
     Indication: Product used for unknown indication
     Dosage: 3 %
     Route: 065
     Dates: start: 20220607
  2. ILEVRO [Suspect]
     Active Substance: NEPAFENAC
     Dosage: UNK (OM IN LEFT EYE)
     Route: 065

REACTIONS (3)
  - Product residue present [Unknown]
  - Liquid product physical issue [Unknown]
  - Incorrect dose administered [Unknown]
